FAERS Safety Report 4889847-5 (Version None)
Quarter: 2006Q1

REPORT INFORMATION
  Report Type: 
  Country: None (occurrence: None)
  Receive Date: 20060124
  Receipt Date: 20051021
  Transmission Date: 20060701
  Serious: Yes (Hospitalization, Other)
  Sender: FDA-Public Use
  Company Number: US-MERCK-0510USA08736

PATIENT
  Age: 61 Year
  Sex: Male
  Weight: 89 kg

DRUGS (8)
  1. VIOXX [Suspect]
     Indication: BACK PAIN
     Route: 048
     Dates: start: 20010926, end: 20040619
  2. VIOXX [Suspect]
     Indication: PAIN IN EXTREMITY
     Route: 048
     Dates: start: 20010926, end: 20040619
  3. ASPIRIN [Concomitant]
     Route: 065
  4. ZANTAC [Concomitant]
     Indication: DYSPEPSIA
     Route: 065
  5. ADVIL [Concomitant]
     Route: 065
     Dates: end: 20050901
  6. CELEBREX [Concomitant]
     Indication: NECK PAIN
     Route: 065
  7. CELEBREX [Concomitant]
     Indication: PAIN IN EXTREMITY
     Route: 065
  8. VIAGRA [Concomitant]
     Indication: SEXUAL DYSFUNCTION
     Route: 065

REACTIONS (12)
  - AORTIC VALVE INCOMPETENCE [None]
  - EMOTIONAL DISTRESS [None]
  - INSOMNIA [None]
  - MITRAL VALVE INCOMPETENCE [None]
  - MYOCARDIAL INFARCTION [None]
  - OSTEONECROSIS [None]
  - PLEURAL EFFUSION [None]
  - POSTPERICARDIOTOMY SYNDROME [None]
  - REPERFUSION ARRHYTHMIA [None]
  - URINARY TRACT DISORDER [None]
  - VENTRICULAR HYPERTROPHY [None]
  - WEIGHT DECREASED [None]
